FAERS Safety Report 9777013 (Version 1)
Quarter: 2013Q4

REPORT INFORMATION
  Report Type: Report from Study
  Country: US (occurrence: US)
  Receive Date: 20131221
  Receipt Date: 20131221
  Transmission Date: 20140711
  Serious: Yes (Hospitalization, Other)
  Sender: FDA-Public Use
  Company Number: US-ROCHE-1320286

PATIENT
  Age: 51 Year
  Sex: Female

DRUGS (7)
  1. AVASTIN [Suspect]
     Indication: RECTAL ADENOCARCINOMA
     Route: 065
     Dates: start: 20080123, end: 20120808
  2. AVASTIN [Suspect]
     Indication: METASTASES TO LIVER
  3. XELODA [Suspect]
     Indication: PRODUCT USED FOR UNKNOWN INDICATION
     Route: 065
     Dates: start: 20081022, end: 20081204
  4. FOLINIC ACID [Concomitant]
  5. OXALIPLATIN [Concomitant]
     Route: 065
     Dates: end: 20081204
  6. FLUOROURACIL [Concomitant]
  7. IRINOTECAN [Concomitant]

REACTIONS (8)
  - Metastases to liver [Unknown]
  - Female genital tract fistula [Unknown]
  - Fistula [Unknown]
  - Biliary tract disorder [Unknown]
  - Biliary tract infection [Unknown]
  - Malnutrition [Unknown]
  - Disease progression [Unknown]
  - Stomatitis [Unknown]
